FAERS Safety Report 20682590 (Version 1)
Quarter: 2022Q2

REPORT INFORMATION
  Report Type: Spontaneous
  Country: US (occurrence: US)
  Receive Date: 20220407
  Receipt Date: 20220407
  Transmission Date: 20220721
  Serious: No
  Sender: FDA-Public Use
  Company Number: US-NOVARTISTESTPH-NVSC2022US078801

PATIENT
  Sex: Female

DRUGS (2)
  1. PIQRAY [Suspect]
     Active Substance: ALPELISIB
     Indication: PIK3CA-activated mutation
     Dosage: 300 MG/KG, QD
     Route: 048
     Dates: start: 20220317
  2. PIQRAY [Suspect]
     Active Substance: ALPELISIB
     Indication: Breast cancer

REACTIONS (1)
  - Hyperglycaemia [Not Recovered/Not Resolved]
